FAERS Safety Report 5050702-1 (Version None)
Quarter: 2006Q2

REPORT INFORMATION
  Report Type: 
  Country: None (occurrence: None)
  Receive Date: 20060614
  Receipt Date: 20060412
  Transmission Date: 20061013
  Serious: Yes (Other)
  Sender: FDA-Public Use
  Company Number: 444306

PATIENT
  Sex: Female

DRUGS (1)
  1. BONIVA [Suspect]
     Indication: OSTEOPENIA
     Dosage: 150 MG 1 PER MONTH ORAL
     Route: 048

REACTIONS (9)
  - ABDOMINAL DISTENSION [None]
  - ABDOMINAL PAIN [None]
  - BACK PAIN [None]
  - BLOOD PRESSURE INCREASED [None]
  - CHEST PAIN [None]
  - NAUSEA [None]
  - OEDEMA PERIPHERAL [None]
  - PAIN [None]
  - PAIN IN EXTREMITY [None]
